FAERS Safety Report 5398291-6 (Version None)
Quarter: 2007Q3

REPORT INFORMATION
  Report Type: 
  Country: None (occurrence: None)
  Receive Date: 20070726
  Receipt Date: 20070717
  Transmission Date: 20080115
  Serious: Yes (Other)
  Sender: FDA-Public Use
  Company Number: DE-GENENTECH-244721

PATIENT
  Sex: Female

DRUGS (5)
  1. MABTHERA [Suspect]
     Indication: LYMPHOMA
  2. CYCLOPHOSPHAMIDE [Concomitant]
     Indication: LYMPHOMA
  3. DOXORUBICIN HCL [Concomitant]
     Indication: LYMPHOMA
  4. VINCRISTINE [Concomitant]
     Indication: LYMPHOMA
  5. PREDNISONE TAB [Concomitant]
     Indication: LYMPHOMA

REACTIONS (2)
  - FACIAL PALSY [None]
  - PARALYSIS [None]
